FAERS Safety Report 20516226 (Version 2)
Quarter: 2022Q1

REPORT INFORMATION
  Report Type: Spontaneous
  Country: IE (occurrence: IE)
  Receive Date: 20220225
  Receipt Date: 20220316
  Transmission Date: 20220423
  Serious: Yes (Hospitalization, Other)
  Sender: FDA-Public Use
  Company Number: None

PATIENT
  Age: 77 Year
  Sex: Female

DRUGS (2)
  1. PACLITAXEL [Suspect]
     Active Substance: PACLITAXEL
     Indication: Endometrial cancer
     Dosage: CYCLE 2 175 MG / M2 THREE WEEKLY = 306 MG PACLITAXEL WAS PREPARED FOR THE PATIENT. 5-8 MINUTES INTO
  2. CARBOPLATIN [Suspect]
     Active Substance: CARBOPLATIN
     Indication: Endometrial cancer
     Dosage: THREE WEEKLY CHEMOTHERAPY.THE PATIENT WAS DUE ADMINISTRATION OF CARBOPLATIN HOWEVER PACLITAXEL WAS A

REACTIONS (5)
  - Unresponsive to stimuli [Unknown]
  - Cardiac arrest [Unknown]
  - Anaphylactic reaction [Unknown]
  - Coma scale abnormal [Unknown]
  - Agonal respiration [Unknown]
